FAERS Safety Report 4312846-9 (Version None)
Quarter: 2004Q1

REPORT INFORMATION
  Report Type: 
  Country: None (occurrence: None)
  Receive Date: 20040304
  Receipt Date: 20040224
  Transmission Date: 20041129
  Serious: Yes (Life-Threatening, Hospitalization)
  Sender: FDA-Public Use
  Company Number: K200400253

PATIENT
  Age: 85 Year
  Sex: Male

DRUGS (2)
  1. ALTACE [Suspect]
     Indication: HYPERTENSION
     Dosage: 5 MG, QD, ORAL; 10 MG, QD, ORAL
     Route: 048
     Dates: start: 19970101, end: 20030929
  2. ALTACE [Suspect]
     Indication: HYPERTENSION
     Dosage: 5 MG, QD, ORAL; 10 MG, QD, ORAL
     Route: 048
     Dates: start: 20030930, end: 20031213

REACTIONS (9)
  - ATRIOVENTRICULAR BLOCK COMPLETE [None]
  - CARDIAC ARREST [None]
  - CONFUSIONAL STATE [None]
  - DYSPHAGIA [None]
  - ESCHERICHIA INFECTION [None]
  - LARYNGEAL OEDEMA [None]
  - MYOCARDIAL INFARCTION [None]
  - PHARYNGITIS [None]
  - PYREXIA [None]
